FAERS Safety Report 15734916 (Version 1)
Quarter: 2018Q4

REPORT INFORMATION
  Report Type: Spontaneous
  Country: US (occurrence: US)
  Receive Date: 20181218
  Receipt Date: 20181218
  Transmission Date: 20190205
  Serious: No
  Sender: FDA-Public Use
  Company Number: US-ASTRAZENECA-2018SF60814

PATIENT
  Age: 25355 Day
  Sex: Female
  Weight: 60.8 kg

DRUGS (2)
  1. LYNPARZA [Suspect]
     Active Substance: OLAPARIB
     Indication: PERITONEAL CANCER INDEX
     Route: 048
     Dates: start: 201804
  2. LYNPARZA [Suspect]
     Active Substance: OLAPARIB
     Indication: PERITONEAL CANCER INDEX
     Route: 048
     Dates: start: 201806

REACTIONS (3)
  - Weight increased [Not Recovered/Not Resolved]
  - Nausea [Unknown]
  - Vomiting [Recovered/Resolved]

NARRATIVE: CASE EVENT DATE: 201804
